FAERS Safety Report 4398849-7 (Version None)
Quarter: 2004Q2

REPORT INFORMATION
  Report Type: 
  Country: None (occurrence: None)
  Receive Date: 20040621
  Receipt Date: 20040213
  Transmission Date: 20050107
  Serious: Yes (Death)
  Sender: FDA-Public Use
  Company Number: USA-2003-0007615

PATIENT
  Age: 40 Year
  Sex: Male
  Weight: 83.4 kg

DRUGS (11)
  1. OXYCODONE HCL [Suspect]
  2. HYDROCODONE BITARTRATE [Suspect]
  3. PROPOXYPHENE HCL [Suspect]
  4. FLURAZEPAM [Suspect]
  5. SALICYLATES (SALICYLATES) [Suspect]
  6. VALPROIC ACID [Suspect]
  7. NICOTINE [Suspect]
  8. SALICYLAMID (SALICYLAMIDE) [Suspect]
  9. BENZTROPEINE (BENZTROPEINE) [Suspect]
  10. METHADONE HCL [Suspect]
  11. CAFFEINE (CAFFEINE) [Suspect]

REACTIONS (2)
  - INTENTIONAL OVERDOSE [None]
  - MULTIPLE DRUG OVERDOSE [None]
